FAERS Safety Report 23977039 (Version 1)
Quarter: 2024Q2

REPORT INFORMATION
  Report Type: Spontaneous
  Country: US (occurrence: US)
  Receive Date: 20240614
  Receipt Date: 20240614
  Transmission Date: 20240715
  Serious: No
  Sender: FDA-Public Use
  Company Number: US-BAYER-2024A086113

PATIENT
  Age: 65 Year
  Sex: Male

DRUGS (2)
  1. LOTRIMIN ULTRA JOCK ITCH [Suspect]
     Active Substance: BUTENAFINE HYDROCHLORIDE
     Indication: Prophylaxis
     Route: 061
  2. LOTRIMIN AF ANTIFUNGAL [Suspect]
     Active Substance: MICONAZOLE NITRATE

REACTIONS (2)
  - Drug ineffective [Recovered/Resolved]
  - Application site pain [Recovered/Resolved]
